FAERS Safety Report 4382068-4 (Version None)
Quarter: 2004Q2

REPORT INFORMATION
  Report Type: 
  Country: None (occurrence: None)
  Receive Date: 20040603
  Receipt Date: 20030410
  Transmission Date: 20050107
  Serious: Yes (Hospitalization)
  Sender: FDA-Public Use
  Company Number: 200313496US

PATIENT

DRUGS (1)
  1. HEAPRIN-FRACTION, SODIUM SALT (LOVENOX) SOLUTION FOR INJECTION [Suspect]
     Indication: ABDOMINAL OPERATION
     Dosage: 40 MG

REACTIONS (1)
  - HAEMORRHAGE [None]
